FAERS Safety Report 4340393-7 (Version None)
Quarter: 2004Q2

REPORT INFORMATION
  Report Type: 
  Country: None (occurrence: None)
  Receive Date: 20040414
  Receipt Date: 20040401
  Transmission Date: 20050107
  Serious: Yes (Hospitalization)
  Sender: FDA-Public Use
  Company Number: US071317

PATIENT
  Age: 54 Year
  Sex: Male
  Weight: 100 kg

DRUGS (7)
  1. ETANERCEPT [Suspect]
     Indication: ANKYLOSING SPONDYLITIS
     Dosage: 50 MG, 1 IN 1 WEEKS, SC
     Route: 058
     Dates: start: 20020523
  2. FLUVOXAMINE MALEATE [Concomitant]
  3. ACCUPRIL [Concomitant]
  4. CLONAZEPAM [Concomitant]
  5. TORSEMIDE [Concomitant]
  6. TAMSULOSIN HCL [Concomitant]
  7. VICODIN [Concomitant]

REACTIONS (1)
  - DIVERTICULAR PERFORATION [None]
